FAERS Safety Report 14172133 (Version 1)
Quarter: 2017Q4

REPORT INFORMATION
  Report Type: Spontaneous
  Country: RU (occurrence: RU)
  Receive Date: 20171109
  Receipt Date: 20171109
  Transmission Date: 20180321
  Serious: Yes (Hospitalization)
  Sender: FDA-Public Use
  Company Number: RU-ASTRAZENECA-2017SF12512

PATIENT
  Age: 64 Year
  Sex: Female
  Weight: 84 kg

DRUGS (6)
  1. ROSUVASTATIN. [Concomitant]
     Active Substance: ROSUVASTATIN
     Dates: start: 201706
  2. BRILINTA [Suspect]
     Active Substance: TICAGRELOR
     Indication: STENT PLACEMENT
     Route: 048
     Dates: start: 201702
  3. ACETYLSALICYLIC ACID [Concomitant]
     Active Substance: ASPIRIN
     Dates: start: 201706
  4. PROPANORM [Concomitant]
     Active Substance: PROPAFENONE
     Dates: start: 201706
  5. BRILINTA [Suspect]
     Active Substance: TICAGRELOR
     Indication: MYOCARDIAL INFARCTION
     Route: 048
     Dates: start: 201702
  6. EPLERENONE. [Concomitant]
     Active Substance: EPLERENONE
     Dates: start: 201706

REACTIONS (5)
  - Contusion [Not Recovered/Not Resolved]
  - Off label use [Unknown]
  - Arrhythmia [Not Recovered/Not Resolved]
  - Loss of consciousness [Recovered/Resolved]
  - Blood pressure decreased [Recovered/Resolved]

NARRATIVE: CASE EVENT DATE: 201702
